FAERS Safety Report 11156157 (Version 1)
Quarter: 2015Q2

REPORT INFORMATION
  Report Type: Spontaneous
  Country: US (occurrence: None)
  Receive Date: 20150601
  Receipt Date: 20150601
  Transmission Date: 20150821
  Serious: Yes (Disabling)
  Sender: FDA-Public Use
  Company Number: None

PATIENT
  Age: 59 Year
  Sex: Female

DRUGS (16)
  1. NASACORT NASAL SPRAY [Concomitant]
  2. THERALITH XR [Concomitant]
  3. OMEGA-3 ACIDS [Concomitant]
     Active Substance: OMEGA-3 FATTY ACIDS
  4. AVELOX [Suspect]
     Active Substance: MOXIFLOXACIN HYDROCHLORIDE
     Indication: INFECTION PROPHYLAXIS
     Route: 048
     Dates: start: 20141028, end: 20141103
  5. FISH OIL [Concomitant]
     Active Substance: FISH OIL
  6. MIGRAINE [Concomitant]
  7. ADVIL [Concomitant]
     Active Substance: IBUPROFEN
  8. ALLEGRA [Concomitant]
     Active Substance: FEXOFENADINE HYDROCHLORIDE
  9. VITAMIN C [Concomitant]
     Active Substance: ASCORBIC ACID
  10. ALBUTEROL. [Concomitant]
     Active Substance: ALBUTEROL
  11. OXYCONTIN [Concomitant]
     Active Substance: OXYCODONE HYDROCHLORIDE
  12. AFRIN [Concomitant]
     Active Substance: OXYMETAZOLINE
  13. CULTURELLE [Concomitant]
     Active Substance: LACTOBACILLUS RHAMNOSUS
  14. DAILY WOMEN^S VITAMIN [Concomitant]
  15. EXCEDRIN EXTRA STRENGTH [Concomitant]
     Active Substance: ACETAMINOPHEN\ASPIRIN\CAFFEINE
  16. PROBIOTIC [Concomitant]
     Active Substance: PROBIOTICS NOS

REACTIONS (2)
  - No therapeutic response [None]
  - Plantar fasciitis [None]

NARRATIVE: CASE EVENT DATE: 20150125
